FAERS Safety Report 7001579-6 (Version None)
Quarter: 2010Q3

REPORT INFORMATION
  Report Type: 
  Country: None (occurrence: None)
  Receive Date: 20100920
  Receipt Date: 20100910
  Transmission Date: 20110219
  Serious: Yes (Hospitalization)
  Sender: FDA-Public Use
  Company Number: US-SANOFI-AVENTIS-2010SA054829

PATIENT
  Sex: Female

DRUGS (2)
  1. LANTUS [Suspect]
  2. OPTICLICK [Suspect]

REACTIONS (1)
  - HOSPITALISATION [None]
